FAERS Safety Report 9160812 (Version 1)
Quarter: 2013Q1

REPORT INFORMATION
  Report Type: Spontaneous
  Country: IN (occurrence: IN)
  Receive Date: 20130313
  Receipt Date: 20130313
  Transmission Date: 20140127
  Serious: Yes (Other)
  Sender: FDA-Public Use
  Company Number: IN-BRISTOL-MYERS SQUIBB COMPANY-17475526

PATIENT
  Sex: 0

DRUGS (1)
  1. KOMBIGLYZE XR [Suspect]

REACTIONS (1)
  - Gastrointestinal disorder [Unknown]
